FAERS Safety Report 18539703 (Version 1)
Quarter: 2020Q4

REPORT INFORMATION
  Report Type: Spontaneous
  Country: US (occurrence: US)
  Receive Date: 20201123
  Receipt Date: 20201123
  Transmission Date: 20210114
  Serious: Yes (Hospitalization)
  Sender: FDA-Public Use
  Company Number: None

PATIENT
  Age: 65 Year
  Sex: Male

DRUGS (4)
  1. PROAIR HFA [Suspect]
     Active Substance: ALBUTEROL SULFATE
  2. JULUCA [Suspect]
     Active Substance: DOLUTEGRAVIR SODIUM\RILPIVIRINE HYDROCHLORIDE
  3. DRONABINOL 10MG [Suspect]
     Active Substance: DRONABINOL
     Indication: HIV INFECTION
     Route: 048
  4. TESTOSTERONE. [Suspect]
     Active Substance: TESTOSTERONE

REACTIONS (4)
  - Skin ulcer [None]
  - Haemorrhage [None]
  - Contusion [None]
  - Pneumonia [None]
